FAERS Safety Report 6936629-6 (Version None)
Quarter: 2010Q3

REPORT INFORMATION
  Report Type: 
  Country: None (occurrence: None)
  Receive Date: 20100818
  Receipt Date: 20100803
  Transmission Date: 20110219
  Serious: Yes (Other)
  Sender: FDA-Public Use
  Company Number: 010613

PATIENT
  Sex: Male

DRUGS (1)
  1. SAMSCA [Suspect]

REACTIONS (2)
  - ILEUS [None]
  - RENAL FAILURE [None]
